FAERS Safety Report 21351849 (Version 1)
Quarter: 2022Q3

REPORT INFORMATION
  Report Type: Spontaneous
  Country: FI (occurrence: None)
  Receive Date: 20220920
  Receipt Date: 20220920
  Transmission Date: 20221026
  Serious: Yes (Life-Threatening)
  Sender: FDA-Public Use
  Company Number: 2022A319051

PATIENT
  Age: 38 Year
  Sex: Male

DRUGS (2)
  1. QUETIAPINE FUMARATE [Interacting]
     Active Substance: QUETIAPINE FUMARATE
     Indication: Bipolar disorder
     Dosage: 100,MG,DAILY
     Route: 048
     Dates: start: 2012
  2. AMPHETAMINE [Interacting]
     Active Substance: AMPHETAMINE
     Indication: Dependence
     Route: 065

REACTIONS (7)
  - Drug interaction [Recovered/Resolved]
  - Arrhythmia [Recovered/Resolved]
  - Fear [Recovered/Resolved]
  - Blood pressure increased [Recovered/Resolved]
  - Akathisia [Recovered/Resolved]
  - Chorea [Recovered/Resolved]
  - Heart rate increased [Recovered/Resolved]

NARRATIVE: CASE EVENT DATE: 20160101
